FAERS Safety Report 26000864 (Version 1)
Quarter: 2025Q4

REPORT INFORMATION
  Report Type: Spontaneous
  Country: US (occurrence: US)
  Receive Date: 20251105
  Receipt Date: 20251105
  Transmission Date: 20260118
  Serious: No
  Sender: ANI
  Company Number: US-ANIPHARMA-2025-US-044228

PATIENT
  Sex: Female

DRUGS (16)
  1. CORTICOTROPIN [Suspect]
     Active Substance: CORTICOTROPIN
     Indication: Gout
     Dosage: 80IU TWO TIMES PER WEEK
     Route: 058
  2. ALLOPURINOL [Concomitant]
     Active Substance: ALLOPURINOL
  3. FUROSEMIDE [Concomitant]
     Active Substance: FUROSEMIDE
  4. DENAVIR [Concomitant]
     Active Substance: PENCICLOVIR
  5. DICLOFENAC SODIUM EC [Concomitant]
  6. FAMOTIDINE [Concomitant]
     Active Substance: FAMOTIDINE
  7. METOLAZONE [Concomitant]
     Active Substance: METOLAZONE
  8. METOPROLOL TARTRATE [Concomitant]
     Active Substance: METOPROLOL TARTRATE
  9. DOXYCYCLINE HYCLATE [Concomitant]
     Active Substance: DOXYCYCLINE HYCLATE
  10. PANTOPRAZOLE SODIUM [Concomitant]
     Active Substance: PANTOPRAZOLE SODIUM
  11. TYLENOL EXTRA STRENGTH [Concomitant]
     Active Substance: ACETAMINOPHEN
  12. VITAMIN D3 [Concomitant]
     Active Substance: CHOLECALCIFEROL
  13. ATORVASTATIN CALCIUM [Concomitant]
     Active Substance: ATORVASTATIN CALCIUM
  14. LATANOPROST [Concomitant]
     Active Substance: LATANOPROST
  15. SERTRALINE HYDROCHLORIDE [Concomitant]
     Active Substance: SERTRALINE HYDROCHLORIDE
  16. ISORDIL TITRADOSE [Concomitant]
     Active Substance: ISOSORBIDE DINITRATE

REACTIONS (3)
  - Product dose omission issue [Unknown]
  - Contusion [Unknown]
  - Drug ineffective [Unknown]
